FAERS Safety Report 5591362-0 (Version None)
Quarter: 2008Q1

REPORT INFORMATION
  Report Type: 
  Country: None (occurrence: None)
  Receive Date: 20080115
  Receipt Date: 20080104
  Transmission Date: 20080703
  Serious: Yes (Other)
  Sender: FDA-Public Use
  Company Number: CA-AMGEN-KDL251971

PATIENT
  Sex: Female

DRUGS (4)
  1. ENBREL [Suspect]
     Indication: RHEUMATOID ARTHRITIS
     Route: 058
     Dates: start: 20070201, end: 20070901
  2. LOSEC I.V. [Concomitant]
  3. NAPROSYN [Concomitant]
     Route: 048
  4. PREDNISONE TAB [Concomitant]
     Route: 048

REACTIONS (6)
  - EYE SWELLING [None]
  - INFLAMMATION [None]
  - RASH [None]
  - RASH GENERALISED [None]
  - SWELLING FACE [None]
  - SYSTEMIC LUPUS ERYTHEMATOSUS [None]
